FAERS Safety Report 26110487 (Version 1)
Quarter: 2025Q4

REPORT INFORMATION
  Report Type: Spontaneous
  Country: US (occurrence: US)
  Receive Date: 20251202
  Receipt Date: 20251202
  Transmission Date: 20260117
  Serious: Yes (Other)
  Sender: AMNEAL
  Company Number: US-AMNEAL PHARMACEUTICALS-2025-AMRX-04644

PATIENT
  Age: 57 Year
  Sex: Male

DRUGS (2)
  1. ITRACONAZOLE [Suspect]
     Active Substance: ITRACONAZOLE
     Indication: Pulmonary histoplasmosis
     Dosage: 500 MILLIGRAM, BID, CONTINUED FOR TWO ADDITIONAL MONTHS
     Route: 048
  2. POSACONAZOLE [Suspect]
     Active Substance: POSACONAZOLE
     Indication: Pulmonary histoplasmosis
     Dosage: 300 MILLIGRAM, DAILY
     Route: 065

REACTIONS (1)
  - Apparent mineralocorticoid excess [Recovered/Resolved]
